FAERS Safety Report 15763148 (Version 1)
Quarter: 2018Q4

REPORT INFORMATION
  Report Type: Spontaneous
  Country: US (occurrence: US)
  Receive Date: 20181226
  Receipt Date: 20181226
  Transmission Date: 20190205
  Serious: Yes (Death, Other)
  Sender: FDA-Public Use
  Company Number: US-JNJFOC-20181221078

PATIENT
  Sex: Female

DRUGS (1)
  1. JOHNSON BABY BABY POWDER UNSPECIFIED [Suspect]
     Active Substance: ZINC OXIDE
     Indication: PRODUCT USED FOR UNKNOWN INDICATION
     Route: 061

REACTIONS (2)
  - Ovarian cancer [Fatal]
  - Uterine cancer [Fatal]
